FAERS Safety Report 7496358-X (Version None)
Quarter: 2011Q2

REPORT INFORMATION
  Report Type: 
  Country: None (occurrence: None)
  Receive Date: 20110513
  Receipt Date: 20110504
  Transmission Date: 20111010
  Serious: Yes (Hospitalization, Other)
  Sender: FDA-Public Use
  Company Number: 2010SP054431

PATIENT
  Age: 40 Year
  Sex: Female
  Weight: 115.6672 kg

DRUGS (2)
  1. NUVARING [Suspect]
     Indication: CONTRACEPTION
     Dates: start: 20040301, end: 20050301
  2. NUVARING [Suspect]
     Indication: MENSTRUATION IRREGULAR
     Dates: start: 20040301, end: 20050301

REACTIONS (24)
  - VENOUS INSUFFICIENCY [None]
  - FATIGUE [None]
  - URINARY TRACT INFECTION [None]
  - FLUID RETENTION [None]
  - THROMBOPHLEBITIS [None]
  - COMPUTERISED TOMOGRAM ABNORMAL [None]
  - BRONCHITIS [None]
  - ATELECTASIS [None]
  - NO THERAPEUTIC RESPONSE [None]
  - INTERNATIONAL NORMALISED RATIO DECREASED [None]
  - DIABETES MELLITUS [None]
  - STASIS DERMATITIS [None]
  - CHEST DISCOMFORT [None]
  - PAIN [None]
  - WEIGHT INCREASED [None]
  - COUGH [None]
  - DEEP VEIN THROMBOSIS [None]
  - PNEUMONIA [None]
  - POST THROMBOTIC SYNDROME [None]
  - ASTHMA [None]
  - PERIPHERAL VASCULAR DISORDER [None]
  - OEDEMA PERIPHERAL [None]
  - SKIN HYPERPIGMENTATION [None]
  - BRONCHIAL SECRETION RETENTION [None]
